FAERS Safety Report 5014394-X (Version None)
Quarter: 2006Q2

REPORT INFORMATION
  Report Type: 
  Country: None (occurrence: None)
  Receive Date: 20060531
  Receipt Date: 20060404
  Transmission Date: 20061013
  Serious: No
  Sender: FDA-Public Use
  Company Number: FR-JNJFOC-20060203428

PATIENT
  Age: 49 Year
  Sex: Female
  Weight: 65 kg

DRUGS (2)
  1. REMICADE [Suspect]
     Indication: ANKYLOSING SPONDYLITIS
     Dosage: 8 INFUSIONS
     Route: 042
  2. IXPRIM [Concomitant]
     Indication: PAIN
     Route: 065

REACTIONS (2)
  - PSORIASIS [None]
  - PSORIATIC ARTHROPATHY [None]
